FAERS Safety Report 18666277 (Version 9)
Quarter: 2021Q1

REPORT INFORMATION
  Report Type: Report from Study
  Country: FR (occurrence: FR)
  Receive Date: 20201226
  Receipt Date: 20210331
  Transmission Date: 20210419
  Serious: Yes (Hospitalization)
  Sender: FDA-Public Use
  Company Number: NVSC2020FR333807

PATIENT
  Age: 14 Month
  Sex: Female
  Weight: 8.3 kg

DRUGS (7)
  1. SOLUPRED [Concomitant]
     Dosage: 5 MG
     Route: 065
     Dates: start: 20210123, end: 20210206
  2. SOLUPRED [Concomitant]
     Dosage: 2.5 MG
     Route: 065
     Dates: start: 20210206, end: 20210225
  3. SOLUPRED [Concomitant]
     Dosage: 10 MG, QD
     Route: 065
     Dates: start: 20201230, end: 20210123
  4. ZOLGENSMA [Suspect]
     Active Substance: ONASEMNOGENE ABEPARVOVEC-XIOI
     Indication: SPINAL MUSCULAR ATROPHY
     Dosage: 46.8 ML (9.4 X 10E14  GENOME VECTOR COPIES)
     Route: 042
     Dates: start: 20201201
  5. FORLAX [Concomitant]
     Active Substance: POLYETHYLENE GLYCOL 4000
     Indication: CONSTIPATION
     Dosage: 4 G
     Route: 065
  6. SOLUPRED [Concomitant]
     Indication: PRODUCT USED FOR UNKNOWN INDICATION
     Dosage: 10 MG, QD
     Route: 065
     Dates: start: 20201130
  7. FORLAX [Concomitant]
     Active Substance: POLYETHYLENE GLYCOL 4000
     Dosage: 4 MG
     Route: 065

REACTIONS (13)
  - Rash [Unknown]
  - Thrombocytopenia [Not Recovered/Not Resolved]
  - Blood creatinine decreased [Unknown]
  - Gastroenteritis [Recovered/Resolved]
  - Asthenia [Unknown]
  - Troponin T increased [Unknown]
  - Blood creatine phosphokinase increased [Unknown]
  - Nausea [Unknown]
  - Decreased appetite [Unknown]
  - Vomiting [Unknown]
  - Troponin I increased [Not Recovered/Not Resolved]
  - Aspartate aminotransferase increased [Not Recovered/Not Resolved]
  - Alanine aminotransferase increased [Not Recovered/Not Resolved]

NARRATIVE: CASE EVENT DATE: 20201203
